FAERS Safety Report 14226745 (Version 3)
Quarter: 2019Q4

REPORT INFORMATION
  Report Type: Spontaneous
  Country: US (occurrence: US)
  Receive Date: 20171127
  Receipt Date: 20191211
  Transmission Date: 20200122
  Serious: No
  Sender: FDA-Public Use
  Company Number: US-BIOGEN-2017BI00486172

PATIENT
  Age: 42 Year
  Sex: Female

DRUGS (1)
  1. TECFIDERA [Suspect]
     Active Substance: DIMETHYL FUMARATE
     Indication: MULTIPLE SCLEROSIS
     Route: 050
     Dates: start: 20170426, end: 20171206

REACTIONS (4)
  - Flushing [Unknown]
  - Abdominal distension [Not Recovered/Not Resolved]
  - Muscle spasms [Unknown]
  - Dyspepsia [Unknown]

NARRATIVE: CASE EVENT DATE: 20171116
